FAERS Safety Report 24456510 (Version 2)
Quarter: 2024Q4

REPORT INFORMATION
  Report Type: Spontaneous
  Country: CA (occurrence: CA)
  Receive Date: 20241017
  Receipt Date: 20241018
  Transmission Date: 20250115
  Serious: No
  Sender: ROCHE
  Company Number: CA-ROCHE-3506607

PATIENT
  Age: 67 Year
  Sex: Male
  Weight: 85.0 kg

DRUGS (2)
  1. RITUXAN [Suspect]
     Active Substance: RITUXIMAB
     Indication: Castleman^s disease
     Dosage: 4 DOSES
     Route: 041
     Dates: start: 202401, end: 2024
  2. PREDNISONE [Concomitant]
     Active Substance: PREDNISONE
     Indication: Castleman^s disease

REACTIONS (2)
  - Off label use [Unknown]
  - No adverse event [Unknown]
